FAERS Safety Report 16652926 (Version 2)
Quarter: 2021Q1

REPORT INFORMATION
  Report Type: Report from Study
  Country: US (occurrence: US)
  Receive Date: 20190731
  Receipt Date: 20210317
  Transmission Date: 20210419
  Serious: No
  Sender: FDA-Public Use
  Company Number: US-AMGEN INC.-USASP2019121097

PATIENT
  Age: 53 Year
  Sex: Female

DRUGS (11)
  1. AIMOVIG [Suspect]
     Active Substance: ERENUMAB-AOOE
     Dosage: 70 MILLIGRAM, QMO
     Route: 065
     Dates: start: 20190723, end: 20190723
  2. VALIUM [Concomitant]
     Active Substance: DIAZEPAM
     Indication: VERTIGO
  3. EFFEXOR [Concomitant]
     Active Substance: VENLAFAXINE HYDROCHLORIDE
     Indication: MIGRAINE
     Dosage: 150 MILLIGRAM, QD (DISCONTINUED A FEW MONTHS AGO)
     Dates: start: 2004, end: 2019
  4. TOPAMAX [Concomitant]
     Active Substance: TOPIRAMATE
     Indication: DIZZINESS
     Dosage: 100 MILLIGRAM, TID
     Dates: start: 2004
  5. LYRICA [Concomitant]
     Active Substance: PREGABALIN
     Indication: HOT FLUSH
     Dosage: 75 MILLIGRAM, BID
     Dates: start: 2009
  6. CATAPRES [Concomitant]
     Active Substance: CLONIDINE HYDROCHLORIDE
     Indication: HOT FLUSH
     Dosage: 0.4 MILLIGRAM, QID
     Dates: start: 2009
  7. SYNTHROID [Concomitant]
     Active Substance: LEVOTHYROXINE SODIUM
     Indication: PRODUCT USED FOR UNKNOWN INDICATION
     Route: 065
  8. KLONOPIN [Concomitant]
     Active Substance: CLONAZEPAM
     Indication: PRODUCT USED FOR UNKNOWN INDICATION
     Route: 065
  9. AIMOVIG [Suspect]
     Active Substance: ERENUMAB-AOOE
     Indication: MIGRAINE
     Dosage: 70 MILLIGRAM, QMO
     Route: 065
     Dates: start: 201901, end: 201903
  10. VALIUM [Concomitant]
     Active Substance: DIAZEPAM
     Indication: DIZZINESS
     Dosage: 2.5 MILLIGRAM, QD (AS NEEDED)
  11. TOPAMAX [Concomitant]
     Active Substance: TOPIRAMATE
     Indication: VERTIGO

REACTIONS (6)
  - Intentional product misuse [Unknown]
  - Migraine [Not Recovered/Not Resolved]
  - Dry mouth [Not Recovered/Not Resolved]
  - Muscle spasms [Not Recovered/Not Resolved]
  - Weight decreased [Unknown]
  - Injection site pain [Unknown]

NARRATIVE: CASE EVENT DATE: 2019
